FAERS Safety Report 5683082-9 (Version None)
Quarter: 2008Q1

REPORT INFORMATION
  Report Type: 
  Country: None (occurrence: None)
  Receive Date: 20080327
  Receipt Date: 20080318
  Transmission Date: 20080703
  Serious: Yes (Hospitalization)
  Sender: FDA-Public Use
  Company Number: SE-ELI_LILLY_AND_COMPANY-SE200801002491

PATIENT
  Sex: Male

DRUGS (14)
  1. ALIMTA [Suspect]
     Indication: ADENOSQUAMOUS CELL LUNG CANCER RECURRENT
     Dosage: 1 G PER SQUARE METER
     Route: 065
     Dates: start: 20071016, end: 20071107
  2. ALVEDON [Concomitant]
     Dosage: 500 MG, UNKNOWN
     Route: 065
  3. VOLTAREN /00372301/ [Concomitant]
     Dosage: 50 MG, UNKNOWN
     Route: 065
  4. COZAAR [Concomitant]
     Dosage: UNK, UNKNOWN
     Route: 065
  5. METOCLOPRAMIDE HCL [Concomitant]
     Dosage: UNK, UNKNOWN
     Route: 065
  6. OMEPRAZOLE [Concomitant]
     Dosage: UNK, UNKNOWN
     Route: 065
  7. FOLACIN [Concomitant]
     Dosage: 5 MG, UNKNOWN
     Route: 065
  8. BETAPRED [Concomitant]
     Dosage: 0.5 MG, UNKNOWN
     Route: 065
  9. LAXOBERAL [Concomitant]
     Dosage: 7.5 MG, UNKNOWN
     Route: 065
  10. MORFINE [Concomitant]
     Dosage: 10 MG, UNKNOWN
     Route: 065
  11. DOLCONTIN [Concomitant]
     Dosage: 30 MG, UNKNOWN
     Route: 065
  12. EMCONCOR [Concomitant]
     Dosage: 5 MG, UNKNOWN
     Route: 065
  13. ACETYLCYSTEIN ASTRAZENECA [Concomitant]
     Dosage: 200 MG, UNKNOWN
     Route: 065
  14. ACETYLCYSTEIN ASTRAZENECA [Concomitant]
     Dosage: UNK, UNKNOWN
     Route: 065

REACTIONS (6)
  - ABDOMINAL PAIN [None]
  - AGEUSIA [None]
  - GENERAL PHYSICAL HEALTH DETERIORATION [None]
  - MUCOSAL INFLAMMATION [None]
  - MUSCULAR WEAKNESS [None]
  - PYREXIA [None]
